FAERS Safety Report 8492688-3 (Version None)
Quarter: 2012Q3

REPORT INFORMATION
  Report Type: 
  Country: None (occurrence: None)
  Receive Date: 20120706
  Receipt Date: 20120627
  Transmission Date: 20120928
  Serious: Yes (Hospitalization)
  Sender: FDA-Public Use
  Company Number: DE-ABBOTT-12P-062-0889730-00

PATIENT
  Sex: Female

DRUGS (4)
  1. CALCIUM [Concomitant]
     Indication: PRODUCT USED FOR UNKNOWN INDICATION
  2. HUMIRA [Suspect]
     Dates: start: 20120306
  3. PRAMIPEXOLE DIHYDROCHLORIDE [Concomitant]
     Indication: PRODUCT USED FOR UNKNOWN INDICATION
  4. HUMIRA [Suspect]
     Indication: CROHN'S DISEASE
     Dosage: PAUSED D/T AE
     Route: 058
     Dates: start: 20080530, end: 20120101

REACTIONS (3)
  - TOOTH EXTRACTION [None]
  - NEPHROLITHIASIS [None]
  - PYREXIA [None]
